FAERS Safety Report 8571861-X (Version None)
Quarter: 2012Q3

REPORT INFORMATION
  Report Type: 
  Country: None (occurrence: None)
  Receive Date: 20120806
  Receipt Date: 20120725
  Transmission Date: 20120928
  Serious: Yes (Other)
  Sender: FDA-Public Use
  Company Number: JP-JNJFOC-20120611958

PATIENT
  Sex: Male
  Weight: 42 kg

DRUGS (18)
  1. RISPERDAL [Suspect]
     Route: 048
     Dates: start: 20110416, end: 20110420
  2. CLONAZEPAM [Concomitant]
     Route: 048
     Dates: start: 20110430, end: 20110505
  3. RISPERDAL [Suspect]
     Indication: PRODUCT USED FOR UNKNOWN INDICATION
     Route: 048
     Dates: start: 20110408, end: 20110415
  4. ZYPREXA [Suspect]
     Indication: SCHIZOPHRENIA, DISORGANISED TYPE
     Route: 048
  5. FLUNITRAZEPAM [Concomitant]
     Indication: INSOMNIA
     Route: 048
  6. MAGMITT [Concomitant]
     Route: 048
     Dates: start: 20120302
  7. PHENOBARBITAL TAB [Concomitant]
     Indication: INSOMNIA
     Dosage: 1 DF/DAY
     Route: 048
     Dates: start: 20111216
  8. INVEGA [Suspect]
     Route: 048
     Dates: start: 20110416, end: 20110420
  9. INVEGA [Suspect]
     Route: 048
     Dates: start: 20110426
  10. DEPAKENE [Concomitant]
     Indication: EPILEPSY
     Route: 048
  11. DIAZEPAM [Concomitant]
     Indication: INSOMNIA
     Route: 048
     Dates: start: 20111206, end: 20111218
  12. RISPERDAL [Suspect]
     Route: 048
     Dates: start: 20110421, end: 20110425
  13. NELUROLEN [Concomitant]
     Indication: INSOMNIA
     Route: 048
  14. CLONAZEPAM [Concomitant]
     Route: 048
     Dates: start: 20110506, end: 20110510
  15. MAGMITT [Concomitant]
     Indication: CONSTIPATION
     Route: 048
     Dates: end: 20120301
  16. INVEGA [Suspect]
     Indication: SCHIZOPHRENIA, DISORGANISED TYPE
     Route: 048
     Dates: start: 20110421, end: 20110425
  17. CLONAZEPAM [Concomitant]
     Indication: EPILEPSY
     Route: 048
     Dates: start: 20110511, end: 20110517
  18. CLONAZEPAM [Concomitant]
     Route: 048
     Dates: start: 20110518

REACTIONS (3)
  - PNEUMONIA [None]
  - INSOMNIA [None]
  - ILEUS [None]
